FAERS Safety Report 18942369 (Version 1)
Quarter: 2021Q1

REPORT INFORMATION
  Report Type: Report from Study
  Country: US (occurrence: US)
  Receive Date: 20210225
  Receipt Date: 20210225
  Transmission Date: 20210420
  Serious: Yes (Death)
  Sender: FDA-Public Use
  Company Number: US-PFIZER INC-2021194947

PATIENT

DRUGS (6)
  1. CYCLOPHOSPHAMIDE. [Suspect]
     Active Substance: CYCLOPHOSPHAMIDE
     Indication: LYMPHOCYTIC LYMPHOMA
     Dosage: 10 MG/KG, CYCLIC
     Route: 042
  2. MELPHALAN. [Suspect]
     Active Substance: MELPHALAN
     Indication: LYMPHOCYTIC LYMPHOMA
     Dosage: 0.25 MG/KG, CYCLIC; ON DAYS 1?4
     Route: 048
  3. PREDNISONE. [Suspect]
     Active Substance: PREDNISONE
     Indication: LYMPHOCYTIC LYMPHOMA
     Dosage: 1 MG/KG, CYCLIC; DAYS 1?7
     Route: 048
  4. VINCRISTINE SULFATE. [Suspect]
     Active Substance: VINCRISTINE SULFATE
     Indication: LYMPHOCYTIC LYMPHOMA
     Dosage: 0.03 MG/KG, CYCLIC
     Route: 042
  5. PREDNISONE. [Suspect]
     Active Substance: PREDNISONE
     Dosage: 0.5 MG/KG, CYCLIC; PO DAYS 8?14
  6. BICNU [Suspect]
     Active Substance: CARMUSTINE
     Indication: LYMPHOCYTIC LYMPHOMA
     Dosage: 1 MG/KG, CYCLIC
     Route: 042

REACTIONS (1)
  - Sepsis [Fatal]
